FAERS Safety Report 8051361-6 (Version None)
Quarter: 2012Q1

REPORT INFORMATION
  Report Type: 
  Country: None (occurrence: None)
  Receive Date: 20120117
  Receipt Date: 20120110
  Transmission Date: 20120608
  Serious: Yes (Other)
  Sender: FDA-Public Use
  Company Number: BR-ROCHE-1023825

PATIENT
  Sex: Female

DRUGS (6)
  1. METFORMIN HCL [Concomitant]
  2. LOSARTAN POTASSIUM [Concomitant]
  3. FLUOXETINE [Concomitant]
  4. AMITRIPTYLINE HCL [Concomitant]
  5. HYDROCHLOROTHIAZIDE [Concomitant]
  6. XOLAIR [Suspect]
     Indication: PRODUCT USED FOR UNKNOWN INDICATION
     Dates: start: 20111201

REACTIONS (7)
  - PAIN IN EXTREMITY [None]
  - SUFFOCATION FEELING [None]
  - RASH [None]
  - ASTHENIA [None]
  - MALAISE [None]
  - DYSPNOEA [None]
  - ASTHMA [None]
